FAERS Safety Report 13081421 (Version 1)
Quarter: 2016Q4

REPORT INFORMATION
  Report Type: Spontaneous
  Country: US (occurrence: US)
  Receive Date: 20161228
  Receipt Date: 20161228
  Transmission Date: 20170207
  Serious: Yes (Hospitalization, Other)
  Sender: FDA-Public Use
  Company Number: US-SAOL THERAPEUTICS-2016SAO01291

PATIENT
  Sex: Male

DRUGS (1)
  1. BACLOFEN. [Suspect]
     Active Substance: BACLOFEN
     Indication: CEREBRAL PALSY
     Dosage: 25 ?G, \DAY
     Route: 037
     Dates: end: 20120829

REACTIONS (4)
  - Adhesion [Unknown]
  - Abasia [Unknown]
  - Therapy non-responder [Unknown]
  - Tooth impacted [Unknown]
